FAERS Safety Report 16696456 (Version 1)
Quarter: 2019Q3

REPORT INFORMATION
  Report Type: Spontaneous
  Country: CN (occurrence: CN)
  Receive Date: 20190813
  Receipt Date: 20190813
  Transmission Date: 20191004
  Serious: Yes (Other)
  Sender: FDA-Public Use
  Company Number: CN-BAYER-2019-146093

PATIENT
  Age: 79 Year
  Sex: Male

DRUGS (3)
  1. IOPROMIDE. [Suspect]
     Active Substance: IOPROMIDE
     Indication: ANGIOCARDIOGRAM
  2. IOPROMIDE. [Suspect]
     Active Substance: IOPROMIDE
     Indication: ACUTE MYOCARDIAL INFARCTION
     Dosage: 100 ML, ONCE
     Dates: start: 20190602, end: 20190602
  3. HEPARIN [Concomitant]
     Active Substance: HEPARIN SODIUM
     Dosage: 7000 U

REACTIONS (1)
  - Contrast encephalopathy [Recovered/Resolved]

NARRATIVE: CASE EVENT DATE: 20190602
